FAERS Safety Report 24226986 (Version 2)
Quarter: 2024Q4

REPORT INFORMATION
  Report Type: Report from Study
  Country: US (occurrence: US)
  Receive Date: 20240820
  Receipt Date: 20241021
  Transmission Date: 20250114
  Serious: Yes (Other)
  Sender: AMGEN
  Company Number: US-AMGEN-USASP2024163023

PATIENT
  Age: 56 Year
  Sex: Female

DRUGS (2)
  1. TEPEZZA [Suspect]
     Active Substance: TEPROTUMUMAB-TRBW
     Indication: Toxic goitre
     Dosage: UNK
     Route: 065
     Dates: start: 20231214, end: 20240509
  2. TEPEZZA [Suspect]
     Active Substance: TEPROTUMUMAB-TRBW
     Dosage: UNK FIRST INFUSION ON SECOND COURSE
     Route: 040
     Dates: start: 20241010

REACTIONS (5)
  - Onychoclasis [Unknown]
  - Ingrowing nail [Unknown]
  - Off label use [Unknown]
  - Hypoacusis [Recovered/Resolved]
  - Fatigue [Unknown]

NARRATIVE: CASE EVENT DATE: 20241010
